FAERS Safety Report 4363462-4 (Version None)
Quarter: 2004Q2

REPORT INFORMATION
  Report Type: 
  Country: None (occurrence: None)
  Receive Date: 20040524
  Receipt Date: 20040513
  Transmission Date: 20050107
  Serious: Yes (Death)
  Sender: FDA-Public Use
  Company Number: IT-BRISTOL-MYERS SQUIBB COMPANY-12588018

PATIENT
  Age: 37 Year
  Sex: Male

DRUGS (2)
  1. ZERIT [Suspect]
     Indication: HIV INFECTION
     Route: 048
     Dates: start: 20030702, end: 20040507
  2. VIDEX [Suspect]
     Indication: HIV INFECTION
     Route: 048
     Dates: start: 20040402, end: 20040507

REACTIONS (2)
  - LACTIC ACIDOSIS [None]
  - PANCREATITIS [None]
